FAERS Safety Report 9646762 (Version 2)
Quarter: 2013Q4

REPORT INFORMATION
  Report Type: Spontaneous
  Country: US (occurrence: US)
  Receive Date: 20131027
  Receipt Date: 20131027
  Transmission Date: 20140711
  Serious: Yes (Other)
  Sender: FDA-Public Use
  Company Number: US-NAPPMUNDI-USA_2009_0037970

PATIENT
  Sex: Male

DRUGS (1)
  1. OXYCONTIN TABLETS [Suspect]
     Indication: PRODUCT USED FOR UNKNOWN INDICATION

REACTIONS (2)
  - Drug dependence [Unknown]
  - Drug abuse [Unknown]
